FAERS Safety Report 4425558-8 (Version None)
Quarter: 2004Q3

REPORT INFORMATION
  Report Type: 
  Country: None (occurrence: None)
  Receive Date: 20040810
  Receipt Date: 20040803
  Transmission Date: 20050211
  Serious: Yes (Hospitalization, Disabling)
  Sender: FDA-Public Use
  Company Number: 2004-BP-04777BP

PATIENT
  Age: 66 Year
  Sex: Male
  Weight: 49.9 kg

DRUGS (9)
  1. SPIRIVA [Suspect]
     Indication: CHRONIC OBSTRUCTIVE AIRWAYS DISEASE
     Dosage: 18 MCG (18 MCG, 1 IN 1 D), IH
     Route: 055
     Dates: start: 20040513, end: 20040612
  2. EFFEXOR [Concomitant]
  3. TEGRETOL [Concomitant]
  4. DILANTIN [Concomitant]
  5. ZYPREXA [Concomitant]
  6. PULMICORT [Concomitant]
  7. PEPCID [Concomitant]
  8. LOPRESSOR [Concomitant]
  9. ADVAIR (SERETIDE MITE) [Concomitant]

REACTIONS (4)
  - AGITATION [None]
  - ANTICHOLINERGIC SYNDROME [None]
  - ANTICONVULSANT DRUG LEVEL INCREASED [None]
  - CONFUSIONAL STATE [None]
